FAERS Safety Report 20379696 (Version 2)
Quarter: 2022Q2

REPORT INFORMATION
  Report Type: Spontaneous
  Country: US (occurrence: US)
  Receive Date: 20220126
  Receipt Date: 20220408
  Transmission Date: 20220721
  Serious: No
  Sender: FDA-Public Use
  Company Number: US-BIOGEN-2022BI01088225

PATIENT
  Sex: Female

DRUGS (1)
  1. TYSABRI [Suspect]
     Active Substance: NATALIZUMAB
     Indication: Multiple sclerosis
     Route: 065
     Dates: start: 20170525

REACTIONS (4)
  - Cognitive disorder [Not Recovered/Not Resolved]
  - Stress [Not Recovered/Not Resolved]
  - Restlessness [Not Recovered/Not Resolved]
  - Anxiety [Unknown]
